FAERS Safety Report 7632577-7 (Version None)
Quarter: 2011Q3

REPORT INFORMATION
  Report Type: 
  Country: None (occurrence: None)
  Receive Date: 20110725
  Receipt Date: 20101018
  Transmission Date: 20111222
  Serious: No
  Sender: FDA-Public Use
  Company Number: US-BRISTOL-MYERS SQUIBB COMPANY-15339864

PATIENT
  Age: 82 Year
  Sex: Female
  Weight: 71 kg

DRUGS (4)
  1. COUMADIN [Suspect]
     Dosage: DRUG STARTED AT LEAST A YEAR AGO.COUMADIN TAKEN OFF FOR 3 DAYS.
  2. ALPRAZOLAM [Concomitant]
  3. PEPCID [Concomitant]
     Dosage: PEPCID MAXIMUM
  4. ZETIA [Concomitant]

REACTIONS (2)
  - OESOPHAGOGASTRODUODENOSCOPY [None]
  - PAIN IN EXTREMITY [None]
